FAERS Safety Report 7905082-8 (Version None)
Quarter: 2011Q4

REPORT INFORMATION
  Report Type: 
  Country: None (occurrence: None)
  Receive Date: 20111109
  Receipt Date: 20111107
  Transmission Date: 20120403
  Serious: Yes (Life-Threatening)
  Sender: FDA-Public Use
  Company Number: PHHY2011AU098165

PATIENT
  Sex: Male

DRUGS (4)
  1. PERINDOPRIL ERBUMINE [Concomitant]
  2. LIPITOR [Concomitant]
  3. GLEEVEC [Suspect]
     Indication: CHRONIC MYELOID LEUKAEMIA
     Dosage: 400 MG, DAILY
     Route: 048
     Dates: start: 20090201
  4. LERCANIDIPINE [Concomitant]

REACTIONS (4)
  - RENAL IMPAIRMENT [None]
  - DYSPNOEA [None]
  - CARDIAC OUTPUT DECREASED [None]
  - PERICARDIAL EFFUSION [None]
